FAERS Safety Report 6609159-9 (Version None)
Quarter: 2010Q1

REPORT INFORMATION
  Report Type: 
  Country: None (occurrence: None)
  Receive Date: 20100224
  Receipt Date: 20100209
  Transmission Date: 20100710
  Serious: Yes (Other)
  Sender: FDA-Public Use
  Company Number: AUR_APL_2010_00419

PATIENT
  Age: 59 Year
  Sex: Female

DRUGS (1)
  1. ALENDRONATE SODIUM [Suspect]

REACTIONS (5)
  - BLOOD CALCIUM DECREASED [None]
  - FEMUR FRACTURE [None]
  - INJURY [None]
  - PAIN IN EXTREMITY [None]
  - STRESS FRACTURE [None]
